FAERS Safety Report 15536853 (Version 1)
Quarter: 2018Q4

REPORT INFORMATION
  Report Type: Spontaneous
  Country: CA (occurrence: CA)
  Receive Date: 20181022
  Receipt Date: 20181022
  Transmission Date: 20190205
  Serious: Yes (Hospitalization)
  Sender: FDA-Public Use
  Company Number: CA-LANNETT COMPANY, INC.-CA-2018LAN001230

PATIENT
  Age: 46 Year
  Sex: Male

DRUGS (10)
  1. BACLOFEN (20MG) [Suspect]
     Active Substance: BACLOFEN
     Dosage: 45 MG, QD
     Route: 048
  2. BACLOFEN (20MG) [Suspect]
     Active Substance: BACLOFEN
     Indication: MUSCLE SPASTICITY
     Dosage: 80 MG, QD
     Route: 048
  3. BACLOFEN (20MG) [Suspect]
     Active Substance: BACLOFEN
     Dosage: 130 ?G QD
     Route: 037
  4. HYDROMORPHONE [Concomitant]
     Active Substance: HYDROMORPHONE
     Indication: NEURALGIA
     Dosage: 2 MG, PRN (Q6H)
  5. BACLOFEN (20MG) [Suspect]
     Active Substance: BACLOFEN
     Dosage: 115 ?G QD
     Route: 037
  6. HYDROMORPH CONTIN [Concomitant]
     Active Substance: HYDROMORPHONE
     Dosage: 12 MG, Q12H
     Route: 048
  7. BACLOFEN (20MG) [Suspect]
     Active Substance: BACLOFEN
     Dosage: UNK
  8. CYMBALTA [Concomitant]
     Active Substance: DULOXETINE HYDROCHLORIDE
     Indication: NEURALGIA
     Dosage: 30 MG, QD
     Route: 048
  9. GABAPENTIN. [Concomitant]
     Active Substance: GABAPENTIN
     Indication: NEURALGIA
     Dosage: 1600 MG, QD
  10. HYDROMORPH CONTIN [Concomitant]
     Active Substance: HYDROMORPHONE
     Indication: NEURALGIA
     Dosage: 12 MG, Q8H
     Route: 048

REACTIONS (3)
  - Symptom masked [Unknown]
  - Delirium tremens [Unknown]
  - Alcohol withdrawal syndrome [Unknown]
